FAERS Safety Report 16672005 (Version 2)
Quarter: 2025Q3

REPORT INFORMATION
  Report Type: Spontaneous
  Country: EU (occurrence: EU)
  Receive Date: 20190806
  Receipt Date: 20250911
  Transmission Date: 20251020
  Serious: Yes (Other)
  Sender: AUROBINDO
  Company Number: EU-AUROBINDO-AUR-APL-2019-045250

PATIENT
  Age: 25 Year
  Sex: Female

DRUGS (1)
  1. SUMATRIPTAN [Suspect]
     Active Substance: SUMATRIPTAN
     Indication: Migraine with aura
     Route: 065

REACTIONS (7)
  - Susac^s syndrome [Unknown]
  - Visual impairment [Unknown]
  - Deafness [Unknown]
  - Retinal vein occlusion [Unknown]
  - Sensory loss [Unknown]
  - Headache [Unknown]
  - Pleocytosis [Unknown]
